FAERS Safety Report 12265022 (Version 1)
Quarter: 2016Q2

REPORT INFORMATION
  Report Type: Spontaneous
  Country: US (occurrence: US)
  Receive Date: 20160413
  Receipt Date: 20160413
  Transmission Date: 20160815
  Serious: No
  Sender: FDA-Public Use
  Company Number: US-PFIZER INC-2016167320

PATIENT
  Age: 66 Year
  Sex: Female

DRUGS (2)
  1. LYRICA [Suspect]
     Active Substance: PREGABALIN
     Dosage: TRIED TO TAPER DOWN THE LYRICA FROM 75MG TWICE DAILY
  2. LYRICA [Suspect]
     Active Substance: PREGABALIN
     Indication: PAIN
     Dosage: 75MG CAPSULE BY MOUTH TWICE DAILY
     Route: 048

REACTIONS (2)
  - Gingival bleeding [Recovered/Resolved]
  - Intentional product use issue [Unknown]
